FAERS Safety Report 11732121 (Version 1)
Quarter: 2015Q4

REPORT INFORMATION
  Report Type: Spontaneous
  Country: US (occurrence: US)
  Receive Date: 20151110
  Receipt Date: 20151110
  Transmission Date: 20160304
  Serious: No
  Sender: FDA-Public Use
  Company Number: US-ELI_LILLY_AND_COMPANY-US201202006473

PATIENT
  Sex: Female

DRUGS (3)
  1. FORTEO [Suspect]
     Active Substance: TERIPARATIDE
     Indication: OSTEOPOROSIS
     Dosage: 20 UG, QD
     Dates: start: 201109
  2. FORTEO [Suspect]
     Active Substance: TERIPARATIDE
     Dosage: 20 UG, QD
  3. FORTEO [Suspect]
     Active Substance: TERIPARATIDE
     Dosage: 20 UG, QD

REACTIONS (13)
  - Rhinorrhoea [Recovering/Resolving]
  - Blood sodium increased [Recovered/Resolved]
  - Headache [Recovering/Resolving]
  - Arthralgia [Unknown]
  - Bone pain [Unknown]
  - Fatigue [Recovering/Resolving]
  - Contusion [Recovering/Resolving]
  - Nausea [Recovering/Resolving]
  - Malaise [Unknown]
  - Abdominal pain upper [Unknown]
  - Urine calcium increased [Unknown]
  - Constipation [Not Recovered/Not Resolved]
  - Dizziness [Recovering/Resolving]
